FAERS Safety Report 20342936 (Version 1)
Quarter: 2022Q1

REPORT INFORMATION
  Report Type: Report from Study
  Country: US (occurrence: None)
  Receive Date: 20220117
  Receipt Date: 20220117
  Transmission Date: 20220423
  Serious: Yes (Other)
  Sender: FDA-Public Use
  Company Number: US-ROCHE-2709837

PATIENT
  Age: 41 Year
  Sex: Female
  Weight: 79.4 kg

DRUGS (1)
  1. ATEZOLIZUMAB [Suspect]
     Active Substance: ATEZOLIZUMAB
     Indication: Squamous cell carcinoma of the cervix
     Route: 042
     Dates: start: 20200212

REACTIONS (2)
  - Neutrophil count decreased [Unknown]
  - Thrombocytopenia [Unknown]
